FAERS Safety Report 8054996-X (Version None)
Quarter: 2012Q1

REPORT INFORMATION
  Report Type: 
  Country: None (occurrence: None)
  Receive Date: 20120119
  Receipt Date: 20120116
  Transmission Date: 20120608
  Serious: Yes (Other)
  Sender: FDA-Public Use
  Company Number: BR-PFIZER INC-2012011928

PATIENT
  Age: 51 Year
  Sex: Male
  Weight: 99 kg

DRUGS (1)
  1. LIPITOR [Suspect]
     Indication: BLOOD CHOLESTEROL INCREASED
     Dosage: UNK
     Route: 048
     Dates: start: 20080101, end: 20110101

REACTIONS (2)
  - TENDON RUPTURE [None]
  - FALL [None]
